FAERS Safety Report 4760307-5 (Version None)
Quarter: 2005Q3

REPORT INFORMATION
  Report Type: 
  Country: None (occurrence: None)
  Receive Date: 20050831
  Receipt Date: 20050816
  Transmission Date: 20060218
  Serious: Yes (Other)
  Sender: FDA-Public Use
  Company Number: EWC050845494

PATIENT
  Age: 34 Year
  Sex: Female
  Weight: 76 kg

DRUGS (4)
  1. OLANZAPINE [Suspect]
     Indication: SCHIZOPHRENIA
     Dosage: 20 MG DAY
     Dates: start: 19990203
  2. CLOZARIL [Concomitant]
  3. LITHIUM CARBONATE [Concomitant]
  4. LORAZEPAM [Concomitant]

REACTIONS (11)
  - AGRANULOCYTOSIS [None]
  - APATHY [None]
  - BLUNTED AFFECT [None]
  - CONSTIPATION [None]
  - DELUSION OF GRANDEUR [None]
  - DRUG INEFFECTIVE [None]
  - EXCITABILITY [None]
  - HOSTILITY [None]
  - IMPULSE-CONTROL DISORDER [None]
  - SOCIAL AVOIDANT BEHAVIOUR [None]
  - THINKING ABNORMAL [None]
